FAERS Safety Report 6126698-8 (Version None)
Quarter: 2009Q1

REPORT INFORMATION
  Report Type: 
  Country: None (occurrence: None)
  Receive Date: 20090320
  Receipt Date: 20090318
  Transmission Date: 20090719
  Serious: Yes (Death, Other)
  Sender: FDA-Public Use
  Company Number: PHHY2009GB09895

PATIENT
  Sex: Female
  Weight: 52 kg

DRUGS (9)
  1. RIVASTIGMINE TARTRATE [Suspect]
     Indication: DEMENTIA ALZHEIMER'S TYPE
     Dosage: 1.5 MG, QD
     Route: 048
     Dates: start: 20090206
  2. ALENDRONIC ACID [Concomitant]
  3. AMITRIPTYLINE HCL [Concomitant]
  4. ASPIRIN [Concomitant]
  5. CITALOPRAM HYDROBROMIDE [Concomitant]
  6. ACETAMINOPHEN W/ CODEINE [Concomitant]
  7. ENALAPRIL [Concomitant]
  8. OMEPRAZOLE [Concomitant]
  9. QUETIAPINE FUMARATE [Concomitant]

REACTIONS (3)
  - DEATH [None]
  - DIARRHOEA [None]
  - VOMITING [None]
